FAERS Safety Report 9205184 (Version 1)
Quarter: 2013Q2

REPORT INFORMATION
  Report Type: Spontaneous
  Country: IT (occurrence: IT)
  Receive Date: 20130402
  Receipt Date: 20130402
  Transmission Date: 20140414
  Serious: Yes (Hospitalization)
  Sender: FDA-Public Use
  Company Number: PHHY2013IT030232

PATIENT
  Sex: Female

DRUGS (4)
  1. SIRDALUD [Suspect]
     Indication: INTENTIONAL OVERDOSE
     Dosage: 8 DF (2MG), ONCE/SINGLE
     Route: 048
     Dates: start: 20130308
  2. ALPRAZOLAM [Suspect]
     Indication: INTENTIONAL OVERDOSE
     Dosage: 20 DF, ONCE/SINGLE
     Route: 048
     Dates: start: 20130308
  3. LYRICA [Suspect]
     Indication: INTENTIONAL OVERDOSE
     Dosage: 14 DF, ONCE/SINGLE
     Route: 048
     Dates: start: 20130308
  4. XERISTAR [Suspect]
     Indication: INTENTIONAL OVERDOSE
     Dosage: 80 DF, ONCE/SINGLE
     Route: 048
     Dates: start: 20130308

REACTIONS (2)
  - Drug abuse [Recovered/Resolved]
  - Sopor [Recovered/Resolved]
